FAERS Safety Report 6060759-7 (Version None)
Quarter: 2009Q1

REPORT INFORMATION
  Report Type: 
  Country: None (occurrence: None)
  Receive Date: 20090202
  Receipt Date: 20090122
  Transmission Date: 20090719
  Serious: Yes (Hospitalization)
  Sender: FDA-Public Use
  Company Number: PHHO2009US01376

PATIENT
  Sex: Female
  Weight: 48 kg

DRUGS (3)
  1. EXELON [Suspect]
     Dosage: NO TREATMENT
  2. BLINDED NO TREATMENT RECEIVED NOMED [Suspect]
     Dosage: NO TREATMENT
  3. EXELON [Suspect]
     Indication: DEMENTIA ALZHEIMER'S TYPE
     Dosage: 18 MG / 10 CM PATCH
     Route: 062
     Dates: start: 20080318

REACTIONS (2)
  - FALL [None]
  - HIP FRACTURE [None]
